FAERS Safety Report 6796097-4 (Version None)
Quarter: 2010Q2

REPORT INFORMATION
  Report Type: 
  Country: None (occurrence: None)
  Receive Date: 20100625
  Receipt Date: 20100623
  Transmission Date: 20101027
  Serious: Yes (Hospitalization)
  Sender: FDA-Public Use
  Company Number: FI-ABBOTT-10P-055-0650668-00

PATIENT
  Age: 26 Year
  Sex: Female

DRUGS (4)
  1. HUMIRA [Suspect]
     Indication: JUVENILE ARTHRITIS
     Dates: start: 20100101, end: 20100101
  2. PREDNISOLONE [Concomitant]
     Indication: RHEUMATOID ARTHRITIS
  3. PREDNISOLONE [Concomitant]
  4. REUMACON [Concomitant]
     Indication: DRUG USE FOR UNKNOWN INDICATION
     Dosage: 2X2
     Dates: start: 20100428

REACTIONS (7)
  - ARTHRALGIA [None]
  - GASTRIC DISORDER [None]
  - HUMAN HERPESVIRUS 6 INFECTION [None]
  - JOINT RANGE OF MOTION DECREASED [None]
  - LIVER DISORDER [None]
  - PYREXIA [None]
  - SYNOVITIS [None]
